FAERS Safety Report 5843321-8 (Version None)
Quarter: 2008Q3

REPORT INFORMATION
  Report Type: 
  Country: None (occurrence: None)
  Receive Date: 20080812
  Receipt Date: 20080812
  Transmission Date: 20090109
  Serious: Yes (Other)
  Sender: FDA-Public Use
  Company Number: None

PATIENT
  Sex: Female

DRUGS (14)
  1. REVLIMID [Suspect]
     Indication: MULTIPLE MYELOMA
     Dosage: 15M DAILY 21D/28D PO, 2 MONTHS
     Route: 048
  2. DEXAMETHASONE TAB [Concomitant]
  3. VICODIN [Concomitant]
  4. ZOCOR [Concomitant]
  5. LISINOPRIL [Concomitant]
  6. COMPAZINE [Concomitant]
  7. PROCRIT [Concomitant]
  8. CLONIDINE [Concomitant]
  9. MIDRIN [Concomitant]
  10. OMEPRAZOLE [Concomitant]
  11. COZAAR [Concomitant]
  12. FUROSEMIDE [Concomitant]
  13. SPIRONOLACTONE [Concomitant]
  14. CLONAZEPAM [Concomitant]

REACTIONS (1)
  - RENAL FAILURE CHRONIC [None]
